FAERS Safety Report 25162913 (Version 2)
Quarter: 2025Q2

REPORT INFORMATION
  Report Type: Spontaneous
  Country: PL (occurrence: PL)
  Receive Date: 20250404
  Receipt Date: 20250616
  Transmission Date: 20250716
  Serious: Yes (Hospitalization, Other)
  Sender: Kenvue
  Company Number: PL-EGIS-HUN-2021-1170

PATIENT

DRUGS (63)
  1. ACETAMINOPHEN [Interacting]
     Active Substance: ACETAMINOPHEN
     Indication: Product used for unknown indication
     Dosage: 500 MILLIGRAM, ONCE A DAY (500 MG, DAILY (0-0-1))
     Route: 065
  2. ACETAMINOPHEN [Interacting]
     Active Substance: ACETAMINOPHEN
     Dosage: 1000 MILLIGRAM, ONCE A DAY (500 MG, BID)
     Route: 065
  3. FELODIPINE [Suspect]
     Active Substance: FELODIPINE
     Indication: Hypertension
     Route: 065
  4. OMEPRAZOLE [Interacting]
     Active Substance: OMEPRAZOLE
     Indication: Product used for unknown indication
     Dosage: 20 MILLIGRAM, 40 MG 1-1-0
     Route: 048
  5. OMEPRAZOLE [Interacting]
     Active Substance: OMEPRAZOLE
     Dosage: 200 MILLIGRAM, ONCE A DAY (100 MG, BID)
     Route: 065
  6. CANDESARTAN CILEXETIL [Suspect]
     Active Substance: CANDESARTAN CILEXETIL
     Indication: Atrial fibrillation
     Dosage: 2 MILLIGRAM, QD
     Route: 048
  7. METOPROLOL [Interacting]
     Active Substance: METOPROLOL
     Indication: Product used for unknown indication
     Dosage: 100 MG, 1-0-1
     Route: 048
  8. METOPROLOL [Interacting]
     Active Substance: METOPROLOL
     Route: 065
  9. DAPAGLIFLOZIN [Suspect]
     Active Substance: DAPAGLIFLOZIN
     Indication: Ill-defined disorder
     Dosage: 10 MILLIGRAM, QD
     Route: 065
  10. ESOMEPRAZOLE [Suspect]
     Active Substance: ESOMEPRAZOLE
     Indication: Reflux laryngitis
     Dosage: 40 MILLIGRAM, QD
     Route: 065
  11. RAMIPRIL [Interacting]
     Active Substance: RAMIPRIL
     Indication: Product used for unknown indication
     Dosage: 5 MILLIGRAM, ONCE A DAY (5 MG, DAILY (DOSING 1-0-0))
     Route: 048
  12. ASTRAZENECA COVID-19 VACCINE [Suspect]
     Active Substance: AZD-1222
     Indication: COVID-19 immunisation
     Route: 065
     Dates: start: 20210208
  13. ASTRAZENECA COVID-19 VACCINE [Suspect]
     Active Substance: AZD-1222
     Route: 065
     Dates: start: 20210312
  14. ASTRAZENECA COVID-19 VACCINE [Suspect]
     Active Substance: AZD-1222
     Route: 065
     Dates: start: 20210507
  15. ASTRAZENECA COVID-19 VACCINE [Suspect]
     Active Substance: AZD-1222
     Route: 065
     Dates: start: 20210517
  16. ASTRAZENECA COVID-19 VACCINE [Suspect]
     Active Substance: AZD-1222
     Route: 065
     Dates: start: 20211221
  17. CITALOPRAM [Interacting]
     Active Substance: CITALOPRAM
     Indication: Product used for unknown indication
     Dosage: 40 MILLIGRAM, ONCE A DAY (40 MG, DAILY (1-0-0))
     Route: 065
  18. HYDROXYZINE [Interacting]
     Active Substance: HYDROXYZINE HYDROCHLORIDE
     Indication: Product used for unknown indication
     Route: 065
  19. HYDROXYZINE [Interacting]
     Active Substance: HYDROXYZINE HYDROCHLORIDE
     Dosage: 25 MG, AS NEEDED, AV. TWICE DAILY), STRENGTH 25 MG
     Route: 065
  20. ALPRAZOLAM [Interacting]
     Active Substance: ALPRAZOLAM
     Indication: Depression
     Dosage: 1 MILLIGRAM, ONCE A DAY (0.5 MG, BID (AS NEEDED, AV))
     Route: 065
  21. ZOLPIDEM [Interacting]
     Active Substance: ZOLPIDEM TARTRATE
     Indication: Depression
     Dosage: 10 MG, DAILY (0-0-1)
     Route: 065
  22. ISOSORBIDE MONONITRATE [Interacting]
     Active Substance: ISOSORBIDE MONONITRATE
     Indication: Coronary artery disease
     Dosage: 100 MILLIGRAM, ONCE A DAY (50 MG, BID (AS NEEDED, AV. ONCE/TWICE DAILY))
     Route: 048
  23. ALLOPURINOL [Interacting]
     Active Substance: ALLOPURINOL
     Indication: Product used for unknown indication
     Dosage: 100 MILLIGRAM, ONCE A DAY (100 MG, DAILY (DOSING 1-0-0))
     Route: 048
  24. ATORVASTATIN [Interacting]
     Active Substance: ATORVASTATIN
     Indication: Product used for unknown indication
     Dosage: 20 MG, DAILY (DOSING 0-0-1)
     Route: 065
  25. FUROSEMIDE [Interacting]
     Active Substance: FUROSEMIDE
     Indication: Product used for unknown indication
     Dosage: 120 MILLIGRAM, ONCE A DAY (40 MG, TID (3/DAY))
     Route: 065
  26. BETAHISTINE HYDROCHLORIDE [Interacting]
     Active Substance: BETAHISTINE HYDROCHLORIDE
     Indication: Product used for unknown indication
     Dosage: 24 MG, 0-1-0
     Route: 065
  27. SPIRONOLACTONE [Interacting]
     Active Substance: SPIRONOLACTONE
     Indication: Product used for unknown indication
     Dosage: 100 MG, DAILY (DOSING 0-1-0)
     Route: 065
  28. METOCLOPRAMIDE [Interacting]
     Active Substance: METOCLOPRAMIDE
     Indication: Constipation
     Route: 048
  29. METOCLOPRAMIDE [Interacting]
     Active Substance: METOCLOPRAMIDE
     Route: 065
  30. HYDROCHLOROTHIAZIDE [Suspect]
     Active Substance: HYDROCHLOROTHIAZIDE
     Indication: Product used for unknown indication
     Dosage: 25 MILLIGRAM, ONCE A DAY (25 MG, DAILY (1-0-0))
     Route: 065
  31. POTASSIUM CHLORIDE [Interacting]
     Active Substance: POTASSIUM CHLORIDE
     Indication: Product used for unknown indication
     Route: 065
  32. POTASSIUM CHLORIDE [Interacting]
     Active Substance: POTASSIUM CHLORIDE
     Dosage: 782 MILLIGRAM, ONCE A DAY (391 MG, BID)
     Route: 065
  33. LEVOTHYROXINE [Interacting]
     Active Substance: LEVOTHYROXINE
     Indication: Product used for unknown indication
     Dosage: 125 MILLIGRAM, QD
     Route: 048
  34. LEVOTHYROXINE [Interacting]
     Active Substance: LEVOTHYROXINE
     Dosage: 50 MILLIGRAM, QD
     Route: 048
  35. LEVOTHYROXINE [Interacting]
     Active Substance: LEVOTHYROXINE
     Dosage: 30 MILLIGRAM, QD
     Route: 048
  36. LEVOTHYROXINE [Interacting]
     Active Substance: LEVOTHYROXINE
     Dosage: 100 MICROGRAM, ONCE A DAY (100 MCG, DAILY (1-0-0))
     Route: 065
  37. TRAMADOL [Interacting]
     Active Substance: TRAMADOL
     Indication: Pain
     Route: 065
  38. TRAMADOL [Interacting]
     Active Substance: TRAMADOL
     Route: 065
  39. TRAMADOL [Interacting]
     Active Substance: TRAMADOL
     Route: 048
  40. ALBUTEROL [Interacting]
     Active Substance: ALBUTEROL
     Indication: Product used for unknown indication
     Route: 065
  41. DABIGATRAN [Interacting]
     Active Substance: DABIGATRAN
     Indication: Product used for unknown indication
     Dosage: 1-0-1
     Route: 065
  42. DEXTROSE\NIKETHAMIDE [Suspect]
     Active Substance: DEXTROSE\NIKETHAMIDE
     Indication: Product used for unknown indication
     Route: 065
  43. GLICLAZIDE [Interacting]
     Active Substance: GLICLAZIDE
     Indication: Product used for unknown indication
     Dosage: 60 MG, TID (1-1-1)
     Route: 065
  44. POTASSIUM CHLORIDE [Suspect]
     Active Substance: POTASSIUM CHLORIDE
     Indication: Product used for unknown indication
     Route: 065
  45. LANSOPRAZOLE [Suspect]
     Active Substance: LANSOPRAZOLE
     Indication: Product used for unknown indication
     Dosage: 10 MILLIGRAM, QD
     Route: 065
     Dates: start: 20180207
  46. LANSOPRAZOLE [Suspect]
     Active Substance: LANSOPRAZOLE
     Dosage: 5 MILLIGRAM, QD
     Route: 065
     Dates: start: 20220207
  47. ZOCOR [Suspect]
     Active Substance: SIMVASTATIN
     Indication: Product used for unknown indication
     Dosage: 40 MILLIGRAM, QD
     Route: 065
  48. BISOPROLOL [Suspect]
     Active Substance: BISOPROLOL
     Indication: Cerebrovascular accident prophylaxis
     Dosage: 5 MILLIGRAM, QD
     Route: 065
     Dates: start: 20180207
  49. CETIRIZINE [Suspect]
     Active Substance: CETIRIZINE HYDROCHLORIDE
     Indication: Product used for unknown indication
     Dosage: 10 MILLIGRAM, QD
     Route: 048
  50. LINAGLIPTIN [Suspect]
     Active Substance: LINAGLIPTIN
     Indication: Product used for unknown indication
     Dosage: 5 MILLIGRAM, QD
     Route: 065
  51. ELIQUIS [Suspect]
     Active Substance: APIXABAN
     Indication: Cerebrovascular accident prophylaxis
     Dosage: 10 MILLIGRAM, QD
     Route: 065
     Dates: start: 20180207
  52. ISOSORBIDE DINITRATE [Suspect]
     Active Substance: ISOSORBIDE DINITRATE
     Indication: Product used for unknown indication
     Dosage: 50 MILLIGRAM, QD
     Route: 048
  53. DIGOXIN [Suspect]
     Active Substance: DIGOXIN
     Indication: Cerebrovascular accident prophylaxis
     Dosage: 62.5 MILLIGRAM, QD
     Route: 065
  54. NAPROXEN [Suspect]
     Active Substance: NAPROXEN
     Indication: Product used for unknown indication
     Route: 065
  55. DENOSUMAB [Suspect]
     Active Substance: DENOSUMAB
     Indication: Product used for unknown indication
     Route: 065
  56. DONEPEZIL [Suspect]
     Active Substance: DONEPEZIL
     Indication: Product used for unknown indication
     Route: 065
  57. DEXTROSE [Interacting]
     Active Substance: DEXTROSE MONOHYDRATE
     Indication: Product used for unknown indication
     Route: 065
  58. BENSERAZIDE\LEVODOPA [Suspect]
     Active Substance: BENSERAZIDE\LEVODOPA
     Indication: Product used for unknown indication
     Dosage: 187.5 MILLIGRAM, ONCE A DAY (62.5 MG, TID)
     Route: 065
  59. NIKETHAMIDE [Interacting]
     Active Substance: NIKETHAMIDE
     Indication: Product used for unknown indication
     Route: 065
  60. QUETIAPINE [Suspect]
     Active Substance: QUETIAPINE
     Indication: Product used for unknown indication
     Route: 065
  61. TORSEMIDE [Suspect]
     Active Substance: TORSEMIDE
     Indication: Product used for unknown indication
     Dosage: 5 MILLIGRAM, ONCE A DAY
     Route: 065
  62. VITAMIN D3 [Suspect]
     Active Substance: CHOLECALCIFEROL
     Indication: Product used for unknown indication
     Dosage: UNK, ONCE A DAY
     Route: 065
  63. VORTIOXETINE [Suspect]
     Active Substance: VORTIOXETINE
     Indication: Product used for unknown indication
     Dosage: 10 MILLIGRAM, ONCE A DAY (10 MG, QD)
     Route: 065

REACTIONS (86)
  - Drug dependence [Unknown]
  - Diabetes mellitus inadequate control [Unknown]
  - Hypotension [Unknown]
  - Fall [Unknown]
  - Hyponatraemia [Unknown]
  - Cognitive disorder [Recovered/Resolved]
  - Depression [Unknown]
  - Osteoporosis [Unknown]
  - Mobility decreased [Unknown]
  - Hallucination [Unknown]
  - Malaise [Unknown]
  - Pericarditis [Not Recovered/Not Resolved]
  - Cardiospasm [Not Recovered/Not Resolved]
  - Atrial tachycardia [Unknown]
  - Muscular weakness [Unknown]
  - Anosmia [Recovering/Resolving]
  - Lip swelling [Not Recovered/Not Resolved]
  - Feeling abnormal [Unknown]
  - Dry skin [Not Recovered/Not Resolved]
  - Pain [Unknown]
  - Eye pruritus [Unknown]
  - Amnesia [Recovering/Resolving]
  - Diarrhoea [Unknown]
  - Facial pain [Unknown]
  - Dyspnoea [Unknown]
  - Palpitations [Unknown]
  - Chest pain [Unknown]
  - Tachycardia [Unknown]
  - Abdominal discomfort [Unknown]
  - Pyrexia [Unknown]
  - Angioedema [Unknown]
  - Ventricular tachycardia [Not Recovered/Not Resolved]
  - Pruritus [Recovering/Resolving]
  - Subarachnoid haemorrhage [Recovered/Resolved]
  - Headache [Not Recovered/Not Resolved]
  - Nausea [Unknown]
  - Vomiting [Recovered/Resolved]
  - Disturbance in attention [Recovered/Resolved]
  - Dizziness [Unknown]
  - Palmoplantar keratoderma [Not Recovered/Not Resolved]
  - Migraine [Not Recovered/Not Resolved]
  - Tinnitus [Not Recovered/Not Resolved]
  - Peripheral swelling [Unknown]
  - Pain of skin [Unknown]
  - Tension headache [Not Recovered/Not Resolved]
  - Arthralgia [Unknown]
  - Alopecia [Recovered/Resolved with Sequelae]
  - Memory impairment [Recovering/Resolving]
  - Sleep terror [Unknown]
  - Pruritus genital [Unknown]
  - Visual impairment [Not Recovered/Not Resolved]
  - Diplopia [Not Recovered/Not Resolved]
  - Blindness [Not Recovered/Not Resolved]
  - Vasculitis [Not Recovered/Not Resolved]
  - Transient ischaemic attack [Recovered/Resolved]
  - COVID-19 [Unknown]
  - Heart rate increased [Unknown]
  - Back pain [Unknown]
  - Abdominal pain upper [Unknown]
  - Muscle twitching [Unknown]
  - Hyperhidrosis [Unknown]
  - Rash papular [Unknown]
  - Dehydration [Unknown]
  - Anxiety [Unknown]
  - Abdominal discomfort [Unknown]
  - Insomnia [Unknown]
  - Carotid artery occlusion [Recovered/Resolved]
  - Myocardial infarction [Recovered/Resolved]
  - Arthralgia [Unknown]
  - Constipation [Unknown]
  - Hyponatraemia [Unknown]
  - Initial insomnia [Unknown]
  - Hypoglycaemia [Unknown]
  - Syncope [Unknown]
  - Parkinsonism [Unknown]
  - Off label use [Unknown]
  - Pruritus [Unknown]
  - Melaena [Unknown]
  - Urinary retention [Unknown]
  - Hypotension [Unknown]
  - Hyperglycaemia [Unknown]
  - Dementia [Unknown]
  - Drug ineffective [Unknown]
  - Multiple drug therapy [Unknown]
  - Medication error [Unknown]
  - Product use issue [Recovered/Resolved]

NARRATIVE: CASE EVENT DATE: 20210101
